FAERS Safety Report 13325065 (Version 1)
Quarter: 2017Q1

REPORT INFORMATION
  Report Type: Spontaneous
  Country: US (occurrence: US)
  Receive Date: 20170310
  Receipt Date: 20170310
  Transmission Date: 20170428
  Serious: Yes (Other)
  Sender: FDA-Public Use
  Company Number: US-009507513-1703USA003751

PATIENT
  Age: 38 Year
  Sex: Female

DRUGS (2)
  1. EMEND [Suspect]
     Active Substance: APREPITANT
     Dosage: 150 MG, ONE TIME INFUSION
     Route: 042
     Dates: start: 20170307, end: 20170307
  2. EMEND [Suspect]
     Active Substance: APREPITANT
     Dosage: 150 MG, ONE TIME INFUSION
     Route: 042
     Dates: start: 20170307, end: 20170307

REACTIONS (4)
  - Urticaria [Recovered/Resolved]
  - Nasal congestion [Recovered/Resolved]
  - Secretion discharge [Recovered/Resolved]
  - Erythema [Recovered/Resolved]

NARRATIVE: CASE EVENT DATE: 20170307
